FAERS Safety Report 9471876 (Version 2)
Quarter: 2013Q3

REPORT INFORMATION
  Report Type: Spontaneous
  Country: ES (occurrence: ES)
  Receive Date: 20130823
  Receipt Date: 20130823
  Transmission Date: 20140515
  Serious: Yes (Hospitalization, Other)
  Sender: FDA-Public Use
  Company Number: ES-PFIZER INC-2013147294

PATIENT
  Age: 45 Year
  Sex: Female

DRUGS (9)
  1. RAPAMUNE [Suspect]
     Indication: BONE MARROW TRANSPLANT
     Dosage: 1 MG, UNK
     Route: 048
     Dates: start: 201303
  2. VFEND [Interacting]
     Dosage: 400 MG, UNK
     Route: 042
     Dates: start: 20121022
  3. TACROLIMUS [Concomitant]
     Dosage: UNK
     Dates: start: 201212
  4. ORFIDAL [Concomitant]
  5. MAGNOGENE [Concomitant]
  6. AMOXICILLIN [Concomitant]
     Dosage: 500 MG, UNK
  7. SEPTRIN FORTE [Concomitant]
     Dosage: ON WEEKENDS
  8. MYCOSTATIN [Concomitant]
  9. OMEPRAZOLE [Concomitant]

REACTIONS (5)
  - Skin exfoliation [Not Recovered/Not Resolved]
  - Visual acuity reduced [Unknown]
  - Tremor [Not Recovered/Not Resolved]
  - Drug interaction [Recovering/Resolving]
  - Off label use [Unknown]
